FAERS Safety Report 6519888-3 (Version None)
Quarter: 2009Q4

REPORT INFORMATION
  Report Type: 
  Country: None (occurrence: None)
  Receive Date: 20091229
  Receipt Date: 20091217
  Transmission Date: 20100525
  Serious: Yes (Hospitalization)
  Sender: FDA-Public Use
  Company Number: BR-ABBOTT-08P-020-0477575-00

PATIENT
  Sex: Female
  Weight: 54 kg

DRUGS (5)
  1. HUMIRA [Suspect]
     Indication: RHEUMATOID ARTHRITIS
     Route: 058
     Dates: start: 20071017, end: 20080101
  2. ROTAVIRUS TREATMENT MEDICATION [Suspect]
     Indication: DRUG USE FOR UNKNOWN INDICATION
     Dosage: NOT REPORTED
  3. METICORTEN [Concomitant]
     Indication: RHEUMATOID ARTHRITIS
  4. SYNTHROID [Concomitant]
     Indication: HYPOTHYROIDISM
     Route: 048
     Dates: start: 20020101
  5. OMEPRAZOLE [Concomitant]
     Indication: GASTRIC DISORDER
     Route: 048
     Dates: start: 20060101

REACTIONS (4)
  - ASTHENIA [None]
  - GENERALISED OEDEMA [None]
  - ROTAVIRUS INFECTION [None]
  - WEIGHT DECREASED [None]
